FAERS Safety Report 18611610 (Version 1)
Quarter: 2020Q4

REPORT INFORMATION
  Report Type: Spontaneous
  Country: US (occurrence: US)
  Receive Date: 20201214
  Receipt Date: 20201214
  Transmission Date: 20210114
  Serious: No
  Sender: FDA-Public Use
  Company Number: US-JNJFOC-20201215714

PATIENT
  Age: 61 Year
  Sex: Female
  Weight: 68.1 kg

DRUGS (5)
  1. FLECAINIDE [Concomitant]
     Active Substance: FLECAINIDE
     Route: 065
  2. PEPCID [Concomitant]
     Active Substance: FAMOTIDINE
  3. REMICADE [Suspect]
     Active Substance: INFLIXIMAB
     Indication: CROHN^S DISEASE
     Route: 042
  4. ALLEGRA [Concomitant]
     Active Substance: FEXOFENADINE HYDROCHLORIDE
     Route: 065
  5. ASPRIN [Concomitant]
     Active Substance: ASPIRIN
     Route: 065

REACTIONS (4)
  - Pollakiuria [Unknown]
  - Flushing [Unknown]
  - Infusion related reaction [Unknown]
  - Vision blurred [Unknown]

NARRATIVE: CASE EVENT DATE: 20201204
